FAERS Safety Report 4510450-0 (Version None)
Quarter: 2004Q4

REPORT INFORMATION
  Report Type: 
  Country: None (occurrence: None)
  Receive Date: 20041124
  Receipt Date: 20030911
  Transmission Date: 20050328
  Serious: Yes (Hospitalization, Other)
  Sender: FDA-Public Use
  Company Number: KE-GLAXOSMITHKLINE-B0309032A

PATIENT
  Age: 25 Year
  Sex: Female
  Weight: 68.3 kg

DRUGS (2)
  1. COMBIVIR [Suspect]
     Indication: ANTIVIRAL PROPHYLAXIS
     Dosage: 1TAB TWICE PER DAY
     Route: 048
     Dates: start: 20030814, end: 20040126
  2. NEVIRAPINE [Suspect]
     Indication: ANTIVIRAL PROPHYLAXIS
     Dosage: 1TAB TWICE PER DAY
     Route: 048
     Dates: start: 20030814, end: 20040126

REACTIONS (18)
  - ANAEMIA [None]
  - BLOOD PRESSURE DIASTOLIC INCREASED [None]
  - COUGH [None]
  - CRACKLES LUNG [None]
  - DRUG EXPOSURE DURING PREGNANCY [None]
  - DYSPNOEA [None]
  - LOBAR PNEUMONIA [None]
  - LUNG INFILTRATION [None]
  - NEUTROPENIA [None]
  - PALLOR [None]
  - PLEURITIC PAIN [None]
  - POSTPARTUM HAEMORRHAGE [None]
  - PRODUCTIVE COUGH [None]
  - PYREXIA [None]
  - RESPIRATORY RATE INCREASED [None]
  - TACHYCARDIA [None]
  - VAGINAL DISCHARGE [None]
  - VAGINAL HAEMORRHAGE [None]
